FAERS Safety Report 8113092-3 (Version None)
Quarter: 2012Q1

REPORT INFORMATION
  Report Type: 
  Country: None (occurrence: None)
  Receive Date: 20120203
  Receipt Date: 20120131
  Transmission Date: 20120608
  Serious: Yes (Other)
  Sender: FDA-Public Use
  Company Number: DE-GLAXOSMITHKLINE-D0074345A

PATIENT
  Age: 45 Year
  Sex: Male

DRUGS (1)
  1. VIANI MITE [Suspect]
     Route: 065

REACTIONS (1)
  - CHORIORETINITIS [None]
